FAERS Safety Report 8911972 (Version 1)
Quarter: 2012Q4

REPORT INFORMATION
  Report Type: 
  Country: US (occurrence: US)
  Receive Date: 20121116
  Receipt Date: 20121116
  Transmission Date: 20130627
  Serious: No
  Sender: FDA-Public Use
  Company Number: US-PFIZER INC-2012268705

PATIENT
  Age: 69 Year
  Sex: Female

DRUGS (2)
  1. LIPITOR [Suspect]
     Indication: HIGH CHOLESTEROL
     Dosage: 40 mg, once daily
     Route: 048
     Dates: start: 2010
  2. LISINOPRIL [Concomitant]
     Dosage: UNK

REACTIONS (1)
  - Memory impairment [Unknown]
